FAERS Safety Report 11852971 (Version 1)
Quarter: 2015Q4

REPORT INFORMATION
  Report Type: Report from Study
  Country: US (occurrence: US)
  Receive Date: 20151218
  Receipt Date: 20151218
  Transmission Date: 20160305
  Serious: Yes (Disabling, Other)
  Sender: FDA-Public Use
  Company Number: US-REGENERON PHARMACEUTICALS, INC.-2015-14701

PATIENT

DRUGS (3)
  1. EYLEA [Suspect]
     Active Substance: AFLIBERCEPT
     Indication: VITREOUS FLOATERS
     Dosage: UNK
     Route: 031
     Dates: start: 20151112
  2. INSULIN [Concomitant]
     Active Substance: INSULIN NOS
  3. METFORMIN [Concomitant]
     Active Substance: METFORMIN HYDROCHLORIDE

REACTIONS (12)
  - Eye disorder [Not Recovered/Not Resolved]
  - Eye infection [Recovering/Resolving]
  - Blindness [Recovering/Resolving]
  - Eye swelling [Recovering/Resolving]
  - Rhinorrhoea [Unknown]
  - Vitreous floaters [Recovering/Resolving]
  - Eye pain [Unknown]
  - Headache [Unknown]
  - Ocular hyperaemia [Recovered/Resolved]
  - Swelling face [Unknown]
  - Vision blurred [Recovering/Resolving]
  - Photophobia [Unknown]

NARRATIVE: CASE EVENT DATE: 20151113
